FAERS Safety Report 16516304 (Version 1)
Quarter: 2019Q3

REPORT INFORMATION
  Report Type: Spontaneous
  Country: US (occurrence: US)
  Receive Date: 20190702
  Receipt Date: 20190702
  Transmission Date: 20191004
  Serious: Yes (Other)
  Sender: FDA-Public Use
  Company Number: None

PATIENT
  Age: 51 Year
  Sex: Female

DRUGS (22)
  1. FISH OIL CAP [Concomitant]
  2. LYRICA [Concomitant]
     Active Substance: PREGABALIN
  3. METFORMIN [Concomitant]
     Active Substance: METFORMIN HYDROCHLORIDE
  4. MONTELUKAST [Concomitant]
     Active Substance: MONTELUKAST SODIUM
  5. AMOXICILLIN. [Concomitant]
     Active Substance: AMOXICILLIN
  6. LIDOCAINE. [Concomitant]
     Active Substance: LIDOCAINE
  7. METHOCARBAM [Concomitant]
     Active Substance: METHOCARBAMOL
  8. CLONIDINE. [Concomitant]
     Active Substance: CLONIDINE
  9. ALEVE [Concomitant]
     Active Substance: NAPROXEN SODIUM
  10. ASPIRIN. [Concomitant]
     Active Substance: ASPIRIN
  11. ATIVAN [Concomitant]
     Active Substance: LORAZEPAM
  12. CONTOUR KIT [Concomitant]
  13. HYDROMORPHON [Concomitant]
     Active Substance: HYDROMORPHONE
  14. LISINOPRIL. [Concomitant]
     Active Substance: LISINOPRIL
  15. AFINITOR [Suspect]
     Active Substance: EVEROLIMUS
     Indication: BREAST CANCER
     Route: 048
     Dates: start: 20190123
  16. EXEMESTANE. [Concomitant]
     Active Substance: EXEMESTANE
  17. LINZESS [Concomitant]
     Active Substance: LINACLOTIDE
  18. LOSARTAN POT [Concomitant]
     Active Substance: LOSARTAN POTASSIUM
  19. CONTOUR TES [Concomitant]
  20. LEVOTHYROXIN [Concomitant]
     Active Substance: LEVOTHYROXINE
  21. LIDODERM [Concomitant]
     Active Substance: LIDOCAINE
  22. LORAZAPAM [Concomitant]
     Active Substance: LORAZEPAM

REACTIONS (5)
  - Facial spasm [None]
  - Blood pressure increased [None]
  - Swelling [None]
  - Dysphagia [None]
  - Swelling face [None]

NARRATIVE: CASE EVENT DATE: 20190626
